FAERS Safety Report 6197072-3 (Version None)
Quarter: 2009Q2

REPORT INFORMATION
  Report Type: 
  Country: None (occurrence: None)
  Receive Date: 20090520
  Receipt Date: 20090506
  Transmission Date: 20091009
  Serious: Yes (Other)
  Sender: FDA-Public Use
  Company Number: GB-PFIZER INC-2009208599

PATIENT
  Age: 45 Year

DRUGS (2)
  1. CHAMPIX [Suspect]
     Dosage: UNK
     Route: 048
  2. ALCOHOL [Suspect]

REACTIONS (1)
  - PHYSICAL ASSAULT [None]
